FAERS Safety Report 4317466-8 (Version None)
Quarter: 2004Q1

REPORT INFORMATION
  Report Type: 
  Country: None (occurrence: None)
  Receive Date: 20040312
  Receipt Date: 20040304
  Transmission Date: 20041129
  Serious: Yes (Hospitalization)
  Sender: FDA-Public Use
  Company Number: 23186

PATIENT
  Age: 74 Year
  Sex: Male

DRUGS (12)
  1. NITROGLYCERIN [Suspect]
     Dosage: 10 MG (10 MG, 1  UB 1 DAY(S) TRANSDERMAL
     Route: 062
     Dates: end: 20040120
  2. ASPIRIN [Suspect]
     Dosage: 75 MG (75 MG, 1 IN 1 DAY(S) ORAL
     Route: 048
     Dates: end: 20040120
  3. STILNOX (ZOLPIDEM) [Suspect]
     Dosage: 10 MG (10 MG, 1 IN 1 DAY(S) ORAL
     Route: 048
  4. BRONCHODUAL (FENOTEROL, IPRATROPIUM BROMURE ANHYDRE) [Suspect]
     Dosage: 3 DOSAGE FORMS (1 DOSAGE FORMS, 3 IN 1 DAY(S) RESPIRATORY INHALATION
     Route: 055
     Dates: end: 20040120
  5. UNICORDIUM (BEPRIDIL) [Suspect]
     Dosage: 100 MG (100 MG, 1 IN 1 DAY(S) ORAL
     Route: 048
     Dates: end: 20040120
  6. OMIX (TAMSULOSIN HYDROCHLORIDE) [Suspect]
     Dosage: 0.4 MG (0.4 MG, 1 IN1 DAY(S) ORAL
     Route: 048
     Dates: end: 20040120
  7. EXOMUC (ACETYLCYSTEIN) [Suspect]
     Dosage: 0.4 MG (0.4 MG, 1 IN1 DAY(S) ORAL
     Route: 048
     Dates: end: 20040120
  8. PNEUMOREL (FENSPIRIDE) [Suspect]
     Dosage: ORAL
     Route: 048
     Dates: end: 20040120
  9. SERETIDE (FLUTICASONE, SALMETEROL) [Suspect]
     Dosage: ORAL
     Route: 048
     Dates: end: 20040120
  10. SERMION (NICERGOLINE) [Suspect]
     Dosage: ORAL
     Route: 048
     Dates: end: 20040120
  11. OLMIFON (ADRAFINIL) [Suspect]
     Dosage: ORAL
  12. NEXEN (NIMESULIDE) [Concomitant]

REACTIONS (3)
  - ECCHYMOSIS [None]
  - IDIOPATHIC THROMBOCYTOPENIC PURPURA [None]
  - THROMBOCYTOPENIA [None]
